FAERS Safety Report 24995799 (Version 2)
Quarter: 2025Q1

REPORT INFORMATION
  Report Type: Spontaneous
  Country: US (occurrence: US)
  Receive Date: 20250221
  Receipt Date: 20250305
  Transmission Date: 20250408
  Serious: No
  Sender: AVERITAS
  Company Number: US-GRUNENTHAL-2025-103108

PATIENT
  Sex: Male

DRUGS (2)
  1. QUTENZA [Suspect]
     Active Substance: CAPSAICIN
     Indication: Neuropathy peripheral
     Route: 061
     Dates: start: 20250213
  2. UNSPECIFIED INGREDIENT [Concomitant]
     Active Substance: UNSPECIFIED INGREDIENT
     Indication: Prostate cancer metastatic
     Route: 065

REACTIONS (2)
  - Application site pain [Unknown]
  - Blister [Unknown]
